FAERS Safety Report 24067458 (Version 1)
Quarter: 2024Q3

REPORT INFORMATION
  Report Type: Report from Study
  Country: BR (occurrence: BR)
  Receive Date: 20240709
  Receipt Date: 20240709
  Transmission Date: 20241017
  Serious: Yes (Other)
  Sender: ABBVIE
  Company Number: BR-ABBVIE-5826002

PATIENT
  Sex: Female
  Weight: 84 kg

DRUGS (6)
  1. RINVOQ [Suspect]
     Active Substance: UPADACITINIB
     Indication: Rheumatoid arthritis
     Dosage: FORM STRENGTH: 15 MILLIGRAM
     Route: 048
     Dates: start: 20211116, end: 202307
  2. DIAZEPAM [Concomitant]
     Active Substance: DIAZEPAM
     Indication: Depression
     Route: 048
     Dates: start: 2020
  3. LOSARTAN [Concomitant]
     Active Substance: LOSARTAN
     Indication: Hypertension
     Dosage: 1 TABLET
     Route: 048
     Dates: start: 20230202
  4. SERTRALINE [Concomitant]
     Active Substance: SERTRALINE HYDROCHLORIDE
     Indication: Depression
     Route: 048
     Dates: start: 2020
  5. AMLODIPINE BESYLATE [Concomitant]
     Active Substance: AMLODIPINE BESYLATE
     Indication: Hypertension
     Dosage: 1 TABLET
     Route: 048
     Dates: start: 202402
  6. GOLIMUMAB [Suspect]
     Active Substance: GOLIMUMAB
     Indication: Rheumatoid arthritis
     Dosage: AMPOULE VIA MUSCLE BELLY OR LEG
     Route: 065
     Dates: start: 20231011

REACTIONS (12)
  - Cerebral ischaemia [Recovered/Resolved with Sequelae]
  - Gait disturbance [Not Recovered/Not Resolved]
  - Joint range of motion decreased [Recovered/Resolved]
  - Oedema peripheral [Recovered/Resolved]
  - Obesity [Recovered/Resolved]
  - Gait disturbance [Recovered/Resolved]
  - Muscular weakness [Not Recovered/Not Resolved]
  - Depression [Recovered/Resolved]
  - Rheumatoid arthritis [Not Recovered/Not Resolved]
  - Weight increased [Recovered/Resolved]
  - Swelling [Recovered/Resolved]
  - Loss of personal independence in daily activities [Recovered/Resolved]

NARRATIVE: CASE EVENT DATE: 20220101
